FAERS Safety Report 22147451 (Version 2)
Quarter: 2023Q2

REPORT INFORMATION
  Report Type: Spontaneous
  Country: US (occurrence: US)
  Receive Date: 20230328
  Receipt Date: 20230404
  Transmission Date: 20230722
  Serious: Yes (Other)
  Sender: FDA-Public Use
  Company Number: US-ABBVIE-4707465

PATIENT
  Sex: Male
  Weight: 73.481 kg

DRUGS (6)
  1. IMBRUVICA [Suspect]
     Active Substance: IBRUTINIB
     Indication: Chronic lymphocytic leukaemia
     Dosage: 28 TAB - BLISTER PACK
     Route: 048
     Dates: start: 201704, end: 20230321
  2. LISINOPRIL [Concomitant]
     Active Substance: LISINOPRIL
     Indication: Blood pressure measurement
  3. ALFUZOSIN [Concomitant]
     Active Substance: ALFUZOSIN
     Indication: Bladder disorder
  4. LORATADINE [Concomitant]
     Active Substance: LORATADINE
     Indication: Hypersensitivity
  5. ASPIRIN [Concomitant]
     Active Substance: ASPIRIN
     Indication: Anticoagulant therapy
  6. FINASTERIDE [Concomitant]
     Active Substance: FINASTERIDE
     Indication: Bladder disorder

REACTIONS (4)
  - Tachycardia paroxysmal [Not Recovered/Not Resolved]
  - Cardiac disorder [Recovering/Resolving]
  - Amaurosis fugax [Recovering/Resolving]
  - Palpitations [Recovering/Resolving]

NARRATIVE: CASE EVENT DATE: 20210101
